FAERS Safety Report 24544654 (Version 1)
Quarter: 2024Q4

REPORT INFORMATION
  Report Type: Spontaneous
  Country: US (occurrence: US)
  Receive Date: 20241024
  Receipt Date: 20241024
  Transmission Date: 20250115
  Serious: No
  Sender: UPSHER SMITH LABORATORIES
  Company Number: US-UPSHER-SMITH LABORATORIES, LLC-2023USL00904

PATIENT
  Sex: Female
  Weight: 80.726 kg

DRUGS (6)
  1. WARFARIN SODIUM [Suspect]
     Active Substance: WARFARIN SODIUM
     Indication: Thrombosis
     Dosage: UNK
     Dates: start: 20230113, end: 20230613
  2. JANTOVEN [Suspect]
     Active Substance: WARFARIN SODIUM
     Indication: Thrombosis
     Dosage: 10 MG, EVERY 48 HOURS
     Route: 048
     Dates: start: 20231011, end: 20231028
  3. JANTOVEN [Suspect]
     Active Substance: WARFARIN SODIUM
     Dosage: 5 MG, EVERY 48 HOURS
     Route: 048
     Dates: start: 20231011, end: 20231028
  4. ENOXAPARIN [Suspect]
     Active Substance: ENOXAPARIN
     Indication: Thrombosis
     Dosage: UNK
     Dates: start: 2023, end: 2023
  5. VITAMINS [Concomitant]
     Active Substance: VITAMINS
  6. DIETARY SUPPLEMENT [Concomitant]
     Active Substance: DIETARY SUPPLEMENT

REACTIONS (17)
  - Palpitations [Not Recovered/Not Resolved]
  - Chest pain [Not Recovered/Not Resolved]
  - Headache [Not Recovered/Not Resolved]
  - Sinus congestion [Not Recovered/Not Resolved]
  - Toothache [Not Recovered/Not Resolved]
  - Cough [Not Recovered/Not Resolved]
  - Myalgia [Not Recovered/Not Resolved]
  - Gait disturbance [Not Recovered/Not Resolved]
  - Reaction to excipient [Not Recovered/Not Resolved]
  - Migraine [Not Recovered/Not Resolved]
  - Sinus pain [Not Recovered/Not Resolved]
  - Paranasal sinus hypersecretion [Unknown]
  - Productive cough [Not Recovered/Not Resolved]
  - Pain [Not Recovered/Not Resolved]
  - Muscular weakness [Not Recovered/Not Resolved]
  - Sciatica [Not Recovered/Not Resolved]
  - Drug ineffective [Not Recovered/Not Resolved]

NARRATIVE: CASE EVENT DATE: 20230101
